FAERS Safety Report 25347113 (Version 2)
Quarter: 2025Q2

REPORT INFORMATION
  Report Type: Spontaneous
  Country: FR (occurrence: FR)
  Receive Date: 20250522
  Receipt Date: 20250529
  Transmission Date: 20250716
  Serious: Yes (Hospitalization, Other)
  Sender: PFIZER
  Company Number: None

PATIENT
  Age: 76 Year
  Sex: Male
  Weight: 88 kg

DRUGS (23)
  1. METHYLPREDNISOLONE SODIUM SUCCINATE [Suspect]
     Active Substance: METHYLPREDNISOLONE SODIUM SUCCINATE
     Indication: Lung disorder
     Route: 042
     Dates: start: 20250328, end: 20250404
  2. AUGMENTIN [Suspect]
     Active Substance: AMOXICILLIN\CLAVULANATE POTASSIUM
     Indication: Infection
     Route: 048
     Dates: start: 20250321, end: 20250326
  3. ATOVAQUONE [Suspect]
     Active Substance: ATOVAQUONE
     Indication: Lung disorder
     Dosage: 1500 MG, 1X/DAY
     Route: 048
     Dates: start: 20250330, end: 20250331
  4. BACTRIM [Concomitant]
     Active Substance: SULFAMETHOXAZOLE\TRIMETHOPRIM
     Indication: Lung disorder
     Dosage: 3 DF, 1X/DAY
     Route: 048
     Dates: start: 20250328, end: 20250330
  5. CEFTRIAXONE SODIUM [Concomitant]
     Active Substance: CEFTRIAXONE SODIUM
     Indication: Lung disorder
     Route: 048
     Dates: start: 20250327, end: 20250403
  6. SPIRAMYCIN ADIPATE [Concomitant]
     Active Substance: SPIRAMYCIN ADIPATE
     Indication: Lung disorder
     Route: 048
     Dates: start: 20250327, end: 20250331
  7. OXYCODONE [Concomitant]
     Active Substance: OXYCODONE
     Route: 042
     Dates: start: 20250330, end: 20250408
  8. OXYCODONE [Concomitant]
     Active Substance: OXYCODONE
     Route: 042
     Dates: start: 20250330, end: 20250408
  9. FUROSEMIDE [Concomitant]
     Active Substance: FUROSEMIDE
     Dosage: 40 MG, 1X/DAY
     Route: 042
     Dates: start: 20250330, end: 20250331
  10. FUROSEMIDE [Concomitant]
     Active Substance: FUROSEMIDE
     Dosage: 4 ML, 1X/DAY
     Route: 042
     Dates: start: 20250330, end: 20250331
  11. OXAZEPAM [Concomitant]
     Active Substance: OXAZEPAM
     Dosage: 5 MG, 1X/DAY
     Route: 048
     Dates: start: 20250330
  12. KARDEGIC [Concomitant]
     Active Substance: ASPIRIN DL-LYSINE
     Dosage: 1 DF, 1X/DAY (POWDER FOR ORAL SOLUTION IN SACHE)
     Route: 048
  13. PERINDOPRIL [Concomitant]
     Active Substance: PERINDOPRIL
     Dosage: 10 MG, 1X/DAY
     Route: 048
  14. AMLODIPINE [Concomitant]
     Active Substance: AMLODIPINE BESYLATE
     Dosage: 10 MG, 1X/DAY
     Route: 048
  15. MIRTAZAPINE [Concomitant]
     Active Substance: MIRTAZAPINE
     Dosage: 15 MG, 1X/DAY
     Route: 048
  16. BISOPROLOL FUMARATE [Concomitant]
     Active Substance: BISOPROLOL FUMARATE
     Dosage: 10 MG, 1X/DAY
     Route: 048
  17. HYDROCHLOROTHIAZIDE [Concomitant]
     Active Substance: HYDROCHLOROTHIAZIDE
     Dosage: 6.25 MG, 1X/DAY
     Route: 048
  18. ATORVASTATIN [Concomitant]
     Active Substance: ATORVASTATIN
     Dosage: 40 MG, 1X/DAY
     Route: 048
  19. EZETIMIBE [Concomitant]
     Active Substance: EZETIMIBE
     Dosage: 10 MG, 1X/DAY
     Route: 048
  20. PANTOPRAZOLE [Concomitant]
     Active Substance: PANTOPRAZOLE
     Dosage: 20 MG, 2X/DAY
     Route: 048
  21. CHOLECALCIFEROL [Concomitant]
     Active Substance: CHOLECALCIFEROL
     Dosage: 50000 IU, MONTHLY
     Route: 048
  22. CHOLECALCIFEROL [Concomitant]
     Active Substance: CHOLECALCIFEROL
     Dosage: 2 ML, MONTHLY
     Route: 048
  23. AZELASTINE [Concomitant]
     Active Substance: AZELASTINE
     Dosage: 0.25 MG, 1X/DAY
     Route: 045

REACTIONS (2)
  - Hepatic cytolysis [Recovering/Resolving]
  - Off label use [Unknown]

NARRATIVE: CASE EVENT DATE: 20250328
